FAERS Safety Report 5974562-7 (Version None)
Quarter: 2008Q4

REPORT INFORMATION
  Report Type: 
  Country: None (occurrence: None)
  Receive Date: 20081201
  Receipt Date: 20081124
  Transmission Date: 20090506
  Serious: Yes (Other)
  Sender: FDA-Public Use
  Company Number: US-PFIZER INC-2008099871

PATIENT
  Sex: Female
  Weight: 77.272 kg

DRUGS (2)
  1. LYRICA [Suspect]
     Indication: NEURALGIA
     Dates: start: 20060101, end: 20081122
  2. NEURONTIN [Suspect]
     Dates: start: 20080101

REACTIONS (1)
  - FEELING ABNORMAL [None]
